FAERS Safety Report 24153402 (Version 1)
Quarter: 2024Q3

REPORT INFORMATION
  Report Type: Spontaneous
  Country: US (occurrence: None)
  Receive Date: 20240730
  Receipt Date: 20240730
  Transmission Date: 20241016
  Serious: Yes (Life-Threatening)
  Sender: Public
  Company Number: None

PATIENT
  Age: 32 Year
  Sex: Female
  Weight: 69.75 kg

DRUGS (5)
  1. DOXYCYCLINE HYCLATE [Suspect]
     Active Substance: DOXYCYCLINE HYCLATE
     Indication: Pneumonia viral
     Dosage: FREQUENCY : TWICE A DAY;?
     Route: 048
     Dates: start: 20240712, end: 20240716
  2. FLUOXETINE [Concomitant]
     Active Substance: FLUOXETINE HYDROCHLORIDE
  3. ALLEGRA [Concomitant]
     Active Substance: FEXOFENADINE HYDROCHLORIDE
  4. RITUAL MULTIVITAMIN [Concomitant]
  5. FLO VITAMIN [Concomitant]

REACTIONS (6)
  - Anxiety [None]
  - Suicidal ideation [None]
  - Nightmare [None]
  - Paranoia [None]
  - Depression [None]
  - Therapy cessation [None]

NARRATIVE: CASE EVENT DATE: 20240716
